FAERS Safety Report 7324037-8 (Version None)
Quarter: 2011Q1

REPORT INFORMATION
  Report Type: 
  Country: None (occurrence: None)
  Receive Date: 20110301
  Receipt Date: 20100824
  Transmission Date: 20110831
  Serious: Yes (Hospitalization, Other)
  Sender: FDA-Public Use
  Company Number: US-BAYER-201024882NA

PATIENT
  Sex: Female
  Weight: 68.027 kg

DRUGS (14)
  1. YAZ [Suspect]
     Indication: PRODUCT USED FOR UNKNOWN INDICATION
     Route: 048
     Dates: start: 20070509, end: 20070625
  2. YASMIN [Suspect]
     Route: 048
     Dates: start: 20070108, end: 20070403
  3. HYDROXYZINE HCL [Concomitant]
     Dosage: 25 MG, UNK
  4. FLEXERIL [Concomitant]
     Dosage: 10 MG, UNK
  5. PREDNISONE [Concomitant]
  6. MOTRIN [Concomitant]
     Indication: JOINT SPRAIN
     Dosage: UNK UNK, PRN
     Dates: start: 20080603
  7. YASMIN [Suspect]
     Dosage: UNK
     Route: 048
     Dates: start: 20070625, end: 20080621
  8. ENTEX LA [GUAIFENESIN,PHENYLEPHRINE HYDROCHLORIDE] [Concomitant]
  9. YASMIN [Suspect]
     Indication: PRODUCT USED FOR UNKNOWN INDICATION
     Route: 048
     Dates: start: 20051104, end: 20061106
  10. ACETAMINOPHEN AND HYDROCODONE BITARTRATE [Concomitant]
  11. SULFAMETHOXAZOLE AND TRIMETHOPRIM [Concomitant]
  12. DIAZEPAM [Concomitant]
     Dosage: 10 MG, UNK
  13. TRAMADOL [Concomitant]
  14. MEDROL [Concomitant]
     Dosage: 4 MG, UNK
     Dates: start: 20080122

REACTIONS (10)
  - CHEST PAIN [None]
  - CHOLECYSTITIS ACUTE [None]
  - ABDOMINAL PAIN [None]
  - OEDEMA PERIPHERAL [None]
  - ABDOMINAL DISCOMFORT [None]
  - ABDOMINAL PAIN UPPER [None]
  - PAIN IN EXTREMITY [None]
  - CHOLELITHIASIS [None]
  - DEEP VEIN THROMBOSIS [None]
  - BACK PAIN [None]
